FAERS Safety Report 7594924-4 (Version None)
Quarter: 2011Q3

REPORT INFORMATION
  Report Type: 
  Country: None (occurrence: None)
  Receive Date: 20110707
  Receipt Date: 20110627
  Transmission Date: 20111222
  Serious: Yes (Hospitalization)
  Sender: FDA-Public Use
  Company Number: AT-SANOFI-AVENTIS-2011SA040633

PATIENT
  Sex: Female

DRUGS (2)
  1. AMIODARONE HCL [Concomitant]
     Indication: ATRIAL FIBRILLATION
  2. MULTAQ [Suspect]
     Indication: ATRIAL FIBRILLATION
     Route: 048
     Dates: start: 20110101

REACTIONS (2)
  - POLYURIA [None]
  - RENAL FAILURE ACUTE [None]
